FAERS Safety Report 10266598 (Version 1)
Quarter: 2014Q2

REPORT INFORMATION
  Report Type: Spontaneous
  Country: GB (occurrence: GB)
  Receive Date: 20140629
  Receipt Date: 20140629
  Transmission Date: 20141212
  Serious: Yes (Other)
  Sender: FDA-Public Use
  Company Number: PHHY2014GB076610

PATIENT
  Age: 62 Year
  Sex: Male
  Weight: 76.2 kg

DRUGS (3)
  1. PRAVASTATIN [Suspect]
     Indication: CEREBROVASCULAR ACCIDENT
     Dosage: 20 MG, UNK
     Route: 048
     Dates: start: 20130128, end: 20140219
  2. CLOPIDOGREL [Concomitant]
  3. LORATADINE [Concomitant]

REACTIONS (2)
  - Ligament pain [Recovering/Resolving]
  - Muscular weakness [Recovering/Resolving]
